FAERS Safety Report 13813560 (Version 2)
Quarter: 2017Q3

REPORT INFORMATION
  Report Type: Spontaneous
  Country: GB (occurrence: GB)
  Receive Date: 20170731
  Receipt Date: 20170822
  Transmission Date: 20171127
  Serious: Yes (Life-Threatening, Hospitalization, Other)
  Sender: FDA-Public Use
  Company Number: GB-SUN PHARMACEUTICAL INDUSTRIES LTD-2017R1-146526

PATIENT
  Age: 69 Year
  Sex: Female

DRUGS (1)
  1. OXYCODONE [Suspect]
     Active Substance: OXYCODONE
     Indication: PRODUCT USED FOR UNKNOWN INDICATION
     Route: 065

REACTIONS (5)
  - Suicide attempt [Unknown]
  - Loss of consciousness [Recovered/Resolved]
  - Intentional overdose [Unknown]
  - Coma scale abnormal [Unknown]
  - Respiratory rate decreased [Recovering/Resolving]
